FAERS Safety Report 12395600 (Version 9)
Quarter: 2019Q2

REPORT INFORMATION
  Report Type: Report from Study
  Country: US (occurrence: US)
  Receive Date: 20160523
  Receipt Date: 20190409
  Transmission Date: 20190711
  Serious: Yes (Hospitalization, Other)
  Sender: FDA-Public Use
  Company Number: US-SA-2016SA089337

PATIENT
  Age: 74 Year
  Sex: Female

DRUGS (5)
  1. DREWELL [Suspect]
     Active Substance: DIPHENHYDRAMINE HYDROCHLORIDE
     Indication: PRURITUS GENERALISED
     Route: 048
  2. ALEMTUZUMAB [Suspect]
     Active Substance: ALEMTUZUMAB
     Indication: MULTIPLE SCLEROSIS
     Dosage: 12 MG,QD
     Route: 041
     Dates: start: 20160411, end: 20170419
  3. SUDAFED COMPOUND [Suspect]
     Active Substance: ACETAMINOPHEN\PSEUDOEPHEDRINE HYDROCHLORIDE
     Indication: HEADACHE
     Dosage: UNK UNK,UNK
     Route: 065
  4. PREDNISONE. [Suspect]
     Active Substance: PREDNISONE
     Dosage: UNK UNK,UNK
     Route: 065
  5. CYANOCOBALAMIN. [Concomitant]
     Active Substance: CYANOCOBALAMIN
     Dosage: UNK UNK,BIW

REACTIONS (47)
  - Urinary incontinence [Recovering/Resolving]
  - Blood urine present [Recovered/Resolved]
  - Viral infection [Recovered/Resolved]
  - Peripheral swelling [Recovering/Resolving]
  - Cognitive disorder [Not Recovered/Not Resolved]
  - Full blood count decreased [Unknown]
  - Cough [Not Recovered/Not Resolved]
  - Erythema [Not Recovered/Not Resolved]
  - Memory impairment [Not Recovered/Not Resolved]
  - Dysuria [Not Recovered/Not Resolved]
  - Pulmonary congestion [Not Recovered/Not Resolved]
  - Vomiting [Recovered/Resolved]
  - Hospitalisation [Unknown]
  - Fatigue [Not Recovered/Not Resolved]
  - Rash macular [Not Recovered/Not Resolved]
  - Drug intolerance [Recovered/Resolved]
  - Blood thyroid stimulating hormone decreased [Not Recovered/Not Resolved]
  - White blood cell count decreased [Recovered/Resolved]
  - Deafness [Not Recovered/Not Resolved]
  - Feeling abnormal [Not Recovered/Not Resolved]
  - Fall [Unknown]
  - Malaise [Unknown]
  - Tooth abscess [Not Recovered/Not Resolved]
  - Tremor [Not Recovered/Not Resolved]
  - Balance disorder [Not Recovered/Not Resolved]
  - Rash [Recovered/Resolved]
  - Head injury [Unknown]
  - Confusional state [Unknown]
  - Headache [Unknown]
  - Diarrhoea [Recovered/Resolved]
  - Thyroid hormones increased [Not Recovered/Not Resolved]
  - Urinary tract infection [Unknown]
  - Panic attack [Not Recovered/Not Resolved]
  - Nervous system disorder [Unknown]
  - Unevaluable event [Recovered/Resolved]
  - Anal incontinence [Not Recovered/Not Resolved]
  - Dysuria [Not Recovered/Not Resolved]
  - Malaise [Unknown]
  - Pyrexia [Unknown]
  - Multiple sclerosis [Unknown]
  - Gait disturbance [Not Recovered/Not Resolved]
  - Condition aggravated [Not Recovered/Not Resolved]
  - Somnolence [Unknown]
  - Asthenia [Recovered/Resolved]
  - Pruritus generalised [Not Recovered/Not Resolved]
  - Hypersensitivity [Unknown]
  - Fatigue [Unknown]

NARRATIVE: CASE EVENT DATE: 2016
